FAERS Safety Report 5676500-3 (Version None)
Quarter: 2008Q2

REPORT INFORMATION
  Report Type: 
  Country: None (occurrence: None)
  Receive Date: 20080311
  Receipt Date: 20080116
  Transmission Date: 20081010
  Serious: No
  Sender: FDA-Public Use
  Company Number: 002#2#2007-00356

PATIENT
  Age: 76 Year
  Sex: Male
  Weight: 68.0396 kg

DRUGS (5)
  1. NEUPRO [Suspect]
     Indication: DRUG USE FOR UNKNOWN INDICATION
     Dosage: 2MG/24H,1 IN1 D,TRANSDERMAL
     Route: 062
     Dates: start: 20071128, end: 20071128
  2. SINEMET [Concomitant]
  3. REQUIP [Concomitant]
  4. PROSCAR [Concomitant]
  5. PRILOSEC [Concomitant]

REACTIONS (5)
  - ASTHENIA [None]
  - BALANCE DISORDER [None]
  - BLOOD PRESSURE DECREASED [None]
  - HYPERTENSION [None]
  - MUSCULAR WEAKNESS [None]
